FAERS Safety Report 6814950-X (Version None)
Quarter: 2010Q3

REPORT INFORMATION
  Report Type: 
  Country: None (occurrence: None)
  Receive Date: 20100701
  Receipt Date: 20100701
  Transmission Date: 20110219
  Serious: Yes (Other)
  Sender: FDA-Public Use
  Company Number: None

PATIENT
  Age: 64 Year
  Sex: Male
  Weight: 106.5953 kg

DRUGS (1)
  1. LOVAZA [Suspect]
     Indication: BLOOD CHOLESTEROL
     Dosage: 1000 MG 4X
     Dates: start: 20070101

REACTIONS (1)
  - CATARACT [None]
